FAERS Safety Report 8737661 (Version 2)
Quarter: 2013Q1

REPORT INFORMATION
  Report Type: Report from Study
  Country: JP (occurrence: JP)
  Receive Date: 20120822
  Receipt Date: 20130325
  Transmission Date: 20140127
  Serious: Yes (Hospitalization)
  Sender: FDA-Public Use
  Company Number: JP-009507513-1208JPN003796

PATIENT
  Age: 61 Year
  Sex: Male
  Weight: 80 kg

DRUGS (6)
  1. PEGINTRON [Suspect]
     Indication: CHRONIC HEPATITIS C
     Dosage: 80MCG/KG/WEEK
     Route: 058
     Dates: start: 20120705, end: 20120714
  2. REBETOL [Suspect]
     Indication: CHRONIC HEPATITIS C
     Route: 048
     Dates: start: 20120705, end: 20120714
  3. TELAVIC [Suspect]
     Indication: CHRONIC HEPATITIS C
     Dosage: 2250 MG, QD
     Route: 048
     Dates: start: 20120705, end: 20120714
  4. ECARD HD [Concomitant]
     Indication: HYPERTENSION
     Dosage: 8MG/6.25MG/DAY
     Route: 048
     Dates: end: 20120714
  5. MINIPRESS [Concomitant]
     Indication: HYPERTENSION
     Route: 048
     Dates: end: 20120714
  6. ADALAT [Concomitant]
     Indication: HYPERTENSION
     Route: 048

REACTIONS (2)
  - Blood creatinine increased [Recovering/Resolving]
  - Convulsion [Recovered/Resolved]
